FAERS Safety Report 7954077-7 (Version None)
Quarter: 2011Q4

REPORT INFORMATION
  Report Type: 
  Country: None (occurrence: None)
  Receive Date: 20111202
  Receipt Date: 20111123
  Transmission Date: 20120403
  Serious: Yes (Other)
  Sender: FDA-Public Use
  Company Number: US-BAYER-2011-071000

PATIENT
  Age: 39 Year
  Sex: Female

DRUGS (2)
  1. YAZ [Suspect]
  2. YASMIN [Suspect]
     Dosage: UNK
     Dates: start: 20020101, end: 20040901

REACTIONS (7)
  - ANXIETY [None]
  - INJURY [None]
  - PAIN [None]
  - ANHEDONIA [None]
  - EMOTIONAL DISTRESS [None]
  - PULMONARY EMBOLISM [None]
  - DEEP VEIN THROMBOSIS [None]
